FAERS Safety Report 6141910-7 (Version None)
Quarter: 2009Q2

REPORT INFORMATION
  Report Type: 
  Country: None (occurrence: None)
  Receive Date: 20090402
  Receipt Date: 20090330
  Transmission Date: 20091009
  Serious: Yes (Hospitalization, Other)
  Sender: FDA-Public Use
  Company Number: US-JNJFOC-20090400093

PATIENT
  Sex: Female
  Weight: 78.02 kg

DRUGS (6)
  1. DURAGESIC-100 [Suspect]
     Indication: BACK PAIN
     Route: 062
  2. DITROPAN [Concomitant]
     Indication: URINE ABNORMALITY
     Route: 048
  3. NEXIUM [Concomitant]
     Indication: GASTROOESOPHAGEAL REFLUX DISEASE
     Route: 048
  4. SYNTHROID [Concomitant]
     Indication: HYPOTHYROIDISM
     Route: 048
  5. ZESTRIL [Concomitant]
     Indication: HYPERTENSION
     Route: 048
  6. UNSPECIFIED ASTHMA MEDICATION [Concomitant]
     Indication: ASTHMA
     Route: 065

REACTIONS (3)
  - EXPIRED DRUG ADMINISTERED [None]
  - MYOCARDIAL INFARCTION [None]
  - STAPHYLOCOCCAL INFECTION [None]
